FAERS Safety Report 19053292 (Version 1)
Quarter: 2021Q1

REPORT INFORMATION
  Report Type: Spontaneous
  Country: FR (occurrence: FR)
  Receive Date: 20210324
  Receipt Date: 20210324
  Transmission Date: 20210420
  Serious: Yes (Death)
  Sender: FDA-Public Use
  Company Number: FR-ROCHE-2791968

PATIENT
  Age: 61 Year
  Sex: Male

DRUGS (5)
  1. TOBRAMYCINE [Suspect]
     Active Substance: TOBRAMYCIN SULFATE
     Indication: LUNG DISORDER
     Route: 045
     Dates: start: 20210206
  2. CLAIRYG [Suspect]
     Active Substance: HUMAN IMMUNOGLOBULIN G
     Indication: PRODUCT USED FOR UNKNOWN INDICATION
     Route: 065
     Dates: start: 20210206
  3. AMIKACINE [Suspect]
     Active Substance: AMIKACIN
     Indication: LUNG DISORDER
     Route: 042
     Dates: start: 20210206, end: 20210206
  4. VALGANCICLOVIR. [Suspect]
     Active Substance: VALGANCICLOVIR
     Indication: CYTOMEGALOVIRUS INFECTION
     Route: 042
     Dates: start: 20210205
  5. COLIMYCINE [COLISTIN] [Suspect]
     Active Substance: COLISTIN
     Indication: LUNG DISORDER
     Route: 042
     Dates: start: 20210206

REACTIONS (1)
  - Acute kidney injury [Fatal]

NARRATIVE: CASE EVENT DATE: 20210208
